FAERS Safety Report 5724450-6 (Version None)
Quarter: 2008Q2

REPORT INFORMATION
  Report Type: 
  Country: None (occurrence: None)
  Receive Date: 20080428
  Receipt Date: 20080415
  Transmission Date: 20081010
  Serious: Yes (Hospitalization)
  Sender: FDA-Public Use
  Company Number: 2008BI010286

PATIENT
  Age: 42 Year
  Sex: Female

DRUGS (2)
  1. TYSABRI [Suspect]
     Indication: RELAPSING-REMITTING MULTIPLE SCLEROSIS
     Dosage: 300 MG; QM; IV
     Route: 042
     Dates: start: 20070606, end: 20080312
  2. ANTIHYPERTENSIVE [Concomitant]

REACTIONS (4)
  - CEREBROVASCULAR ACCIDENT [None]
  - FACIAL PALSY [None]
  - HEMIPLEGIA [None]
  - PROGRESSIVE MULTIFOCAL LEUKOENCEPHALOPATHY [None]
